FAERS Safety Report 23579712 (Version 2)
Quarter: 2024Q1

REPORT INFORMATION
  Report Type: Other
  Country: AT (occurrence: None)
  Receive Date: 20240229
  Receipt Date: 20240311
  Transmission Date: 20240410
  Serious: Yes (Other)
  Sender: FDA-Public Use
  Company Number: AT-ROCHE-3516855

PATIENT
  Sex: Female

DRUGS (2)
  1. OCREVUS [Suspect]
     Active Substance: OCRELIZUMAB
     Indication: Multiple sclerosis
     Dosage: THE MOST RECENT DOSE WAS TAKEN ON 24/AUG/2023.
     Route: 042
     Dates: start: 202208, end: 20230824
  2. KESIMPTA [Concomitant]
     Active Substance: OFATUMUMAB
     Route: 065

REACTIONS (1)
  - Agranulocytosis [Unknown]
